FAERS Safety Report 24993048 (Version 1)
Quarter: 2025Q1

REPORT INFORMATION
  Report Type: Spontaneous
  Country: CN (occurrence: CN)
  Receive Date: 20250221
  Receipt Date: 20250221
  Transmission Date: 20250408
  Serious: Yes (Other)
  Sender: NOVO NORDISK
  Company Number: None

PATIENT
  Age: 77 Year
  Sex: Female

DRUGS (4)
  1. INSULIN ASPART\INSULIN DEGLUDEC [Suspect]
     Active Substance: INSULIN ASPART\INSULIN DEGLUDEC
     Indication: Type 2 diabetes mellitus
     Dosage: 14 IU, QD (BEFORE LUNCH)
     Route: 058
     Dates: start: 20250130, end: 20250131
  2. INSULIN ASPART\INSULIN DEGLUDEC [Suspect]
     Active Substance: INSULIN ASPART\INSULIN DEGLUDEC
     Dosage: 10 IU, QD (BEFORE LUNCH)
     Route: 058
     Dates: start: 20250201
  3. NOVORAPID [Suspect]
     Active Substance: INSULIN ASPART
     Indication: Type 2 diabetes mellitus
     Dosage: 30 IU, QD (12 IU IN THE MORNING AND 18 IU IN THE EVENING, BEFORE MEALS, BID   )
     Route: 058
     Dates: start: 20250130, end: 20250131
  4. NOVORAPID [Suspect]
     Active Substance: INSULIN ASPART
     Dosage: 20 IU, QD (8 IU IN THE MORNING AND 12 IU IN THE EVENING, BEFORE MEALS, BID)
     Route: 058
     Dates: start: 20250201

REACTIONS (2)
  - Asthenia [Recovering/Resolving]
  - Hypoglycaemia [Recovering/Resolving]

NARRATIVE: CASE EVENT DATE: 20250131
